FAERS Safety Report 9161460 (Version 1)
Quarter: 2013Q1

REPORT INFORMATION
  Report Type: Spontaneous
  Country: US (occurrence: US)
  Receive Date: 20130313
  Receipt Date: 20130313
  Transmission Date: 20140127
  Serious: No
  Sender: FDA-Public Use
  Company Number: US-009507513-1303USA006353

PATIENT
  Age: 4 Year
  Sex: Female
  Weight: 19.48 kg

DRUGS (2)
  1. CLARITIN ORAL SOLUTION [Suspect]
     Indication: PRODUCT USED FOR UNKNOWN INDICATION
     Dosage: 5 MG, QD
     Route: 048
     Dates: start: 20130228
  2. CLARITIN ORAL SOLUTION [Suspect]
     Dosage: UNK, ONCE
     Route: 048
     Dates: start: 20130228

REACTIONS (2)
  - Accidental exposure to product by child [Recovering/Resolving]
  - Overdose [Recovering/Resolving]
